FAERS Safety Report 7447493-3 (Version None)
Quarter: 2011Q2

REPORT INFORMATION
  Report Type: 
  Country: None (occurrence: None)
  Receive Date: 20110429
  Receipt Date: 20110419
  Transmission Date: 20111010
  Serious: Yes (Death, Hospitalization)
  Sender: FDA-Public Use
  Company Number: US-CELGENEUS-163-21880-11042564

PATIENT
  Age: 70 Year
  Sex: Female

DRUGS (8)
  1. MORPHINE [Concomitant]
     Route: 065
  2. LORAZEPAM [Concomitant]
     Route: 065
  3. ZOLPIDEM [Concomitant]
     Route: 065
  4. FUROSEMIDE [Concomitant]
     Route: 065
  5. REVLIMID [Suspect]
     Indication: MYELOFIBROSIS
     Dosage: 5 MILLIGRAM
     Route: 048
     Dates: start: 20090201
  6. PREDNISOLONE [Concomitant]
     Route: 065
     Dates: start: 20090201
  7. REVLIMID [Suspect]
     Dosage: 10 MILLIGRAM
     Route: 048
     Dates: start: 20090201, end: 20101001
  8. HYDROCODONE BITARTRATE AND ACETAMINOPHEN [Concomitant]
     Route: 065

REACTIONS (3)
  - ANAEMIA [None]
  - CARDIAC FAILURE [None]
  - INTRA-ABDOMINAL HAEMORRHAGE [None]
